FAERS Safety Report 15884562 (Version 1)
Quarter: 2019Q1

REPORT INFORMATION
  Report Type: Spontaneous
  Country: DE (occurrence: DE)
  Receive Date: 20190129
  Receipt Date: 20190129
  Transmission Date: 20190417
  Serious: Yes (Death)
  Sender: FDA-Public Use
  Company Number: DE-MYLANLABS-2019M1007427

PATIENT
  Age: 80 Year
  Sex: Female

DRUGS (7)
  1. LACOSAMIDE. [Suspect]
     Active Substance: LACOSAMIDE
     Indication: STATUS EPILEPTICUS
     Dosage: 400 MILLIGRAM, QD, 400 MG PER DAY
     Route: 065
  2. TOPIRAMATE. [Concomitant]
     Active Substance: TOPIRAMATE
     Indication: STATUS EPILEPTICUS
     Dosage: 600 MILLIGRAM, , 600 MG PER DAY
  3. SODIUM VALPROATE [Concomitant]
     Active Substance: VALPROATE SODIUM
     Indication: STATUS EPILEPTICUS
     Dosage: 1600 MILLIGRAM, QD,1600 MG PER DAY
  4. LEVETIRACETAM. [Suspect]
     Active Substance: LEVETIRACETAM
     Indication: STATUS EPILEPTICUS
     Dosage: 4000 MILLIGRAM, QD,4000 MG PER DAY
  5. MIDAZOLAM [Concomitant]
     Active Substance: MIDAZOLAM HYDROCHLORIDE
     Indication: STATUS EPILEPTICUS
     Dosage: 10 MILLIGRAM, QD, 10 MG PER DAY
  6. BRIVARACETAM [Concomitant]
     Active Substance: BRIVARACETAM
     Indication: STATUS EPILEPTICUS
     Dosage: 100 MILLIGRAM, QD, 100 MG PER DAY
  7. BRIVARACETAM [Concomitant]
     Active Substance: BRIVARACETAM
     Dosage: 200 MILLIGRAM, QD,200 MG PER DAY

REACTIONS (3)
  - Overdose [Unknown]
  - Death [Fatal]
  - Off label use [Unknown]
